FAERS Safety Report 20335791 (Version 2)
Quarter: 2022Q2

REPORT INFORMATION
  Report Type: Spontaneous
  Country: JP (occurrence: JP)
  Receive Date: 20220114
  Receipt Date: 20220407
  Transmission Date: 20220721
  Serious: Yes (Other)
  Sender: FDA-Public Use
  Company Number: JP-GLAXOSMITHKLINE-JP2022JPN005186

PATIENT
  Age: 89 Year
  Sex: Female

DRUGS (1)
  1. VALTREX [Suspect]
     Active Substance: VALACYCLOVIR HYDROCHLORIDE
     Indication: Herpes zoster
     Dosage: 3000 MG/DAY

REACTIONS (8)
  - Toxic encephalopathy [Unknown]
  - Acute kidney injury [Unknown]
  - Altered state of consciousness [Recovering/Resolving]
  - Dysarthria [Unknown]
  - Agitation [Unknown]
  - Aggression [Unknown]
  - Renal disorder [Recovering/Resolving]
  - Prescribed overdose [Unknown]
